FAERS Safety Report 9311780 (Version 1)
Quarter: 2013Q2

REPORT INFORMATION
  Report Type: Spontaneous
  Country: CA (occurrence: CA)
  Receive Date: 20130524
  Receipt Date: 20130524
  Transmission Date: 20140414
  Serious: Yes (Congenital Anomaly, Other)
  Sender: FDA-Public Use
  Company Number: CA-RB-054260-13

PATIENT
  Sex: Male

DRUGS (8)
  1. SUBOXONE TABLET [Suspect]
     Indication: PRODUCT USED FOR UNKNOWN INDICATION
     Dosage: DOSES UP TO 8 MG; DETAILS UNKNOWN
     Route: 064
  2. SUBUTEX [Suspect]
     Indication: PRODUCT USED FOR UNKNOWN INDICATION
     Dosage: DOSING DETAILS UNKNOWN
     Route: 064
     Dates: start: 20121120, end: 2012
  3. PAROXETINE [Suspect]
     Indication: ANXIETY
     Route: 064
     Dates: start: 2012, end: 2012
  4. GABAPENTIN [Suspect]
     Indication: ANXIETY
     Route: 064
     Dates: start: 2012, end: 2012
  5. CONCERTA [Suspect]
     Indication: DISTURBANCE IN ATTENTION
     Dosage: TAKEN EVERY MORNING BY MOTHER
     Route: 064
     Dates: start: 2012, end: 2012
  6. QUETIAPINE [Suspect]
     Indication: SLEEP DISORDER
     Dosage: TAKEN BY MOTHER AT BEDTIME
     Route: 064
     Dates: start: 2012, end: 2012
  7. ACETAMINOPHEN [Suspect]
     Indication: PRODUCT USED FOR UNKNOWN INDICATION
     Dosage: DOSING DETAILS UNKNOWN
     Route: 064
     Dates: start: 2012, end: 2012
  8. SUBOXONE UNSPECIFIED [Suspect]
     Indication: PRODUCT USED FOR UNKNOWN INDICATION
     Dosage: DOSING DETAILS UNKNOWN
     Route: 063

REACTIONS (6)
  - Foetal exposure during pregnancy [Recovered/Resolved]
  - Exposure during breast feeding [Unknown]
  - Drug withdrawal syndrome neonatal [Unknown]
  - Feeding disorder neonatal [Unknown]
  - Jaundice neonatal [Unknown]
  - Multiple cardiac defects [Unknown]
